FAERS Safety Report 5824253-8 (Version None)
Quarter: 2008Q3

REPORT INFORMATION
  Report Type: 
  Country: None (occurrence: None)
  Receive Date: 20080718
  Receipt Date: 20071222
  Transmission Date: 20090109
  Serious: Yes (Other)
  Sender: FDA-Public Use
  Company Number: A-US2007-18981

PATIENT
  Age: 59 Year
  Sex: Male

DRUGS (20)
  1. TRACLEER [Suspect]
     Indication: PULMONARY HYPERTENSION
     Dosage: 62.5 MG, BID, ORAL
     Route: 048
  2. REVATIO [Concomitant]
  3. ACTOS [Concomitant]
  4. ADVAIR (SALMETEROL XINAFOATE, FLUTICASONE PROPIONATE) [Concomitant]
  5. ALLOPURINOL [Concomitant]
  6. ARAVA [Concomitant]
  7. ASPIRIN [Concomitant]
  8. FLOMAX [Concomitant]
  9. GLUCOPHAGE [Concomitant]
  10. HUMULIN (INSULIN HUMAN INJECTION, ISOPHANE, INSULIN HUMAN ZINC SUSPENS [Concomitant]
  11. IMURAN [Concomitant]
  12. LASIX [Concomitant]
  13. LIPITOR [Concomitant]
  14. LISINOPRIL (LISINOPRIL DIHYDRATE) [Concomitant]
  15. LOPRESSOR [Concomitant]
  16. NASONEX [Concomitant]
  17. NITROSTAT [Concomitant]
  18. PLAVIX [Concomitant]
  19. PREDNISOLONE ACETATE [Concomitant]
  20. ZOLOFT [Concomitant]

REACTIONS (1)
  - SWELLING [None]
